FAERS Safety Report 5579768-7 (Version None)
Quarter: 2008Q1

REPORT INFORMATION
  Report Type: 
  Country: None (occurrence: None)
  Receive Date: 20080102
  Receipt Date: 20071221
  Transmission Date: 20080703
  Serious: Yes (Other)
  Sender: FDA-Public Use
  Company Number: US-PFIZER INC-2007085663

PATIENT
  Sex: Female
  Weight: 42.6 kg

DRUGS (14)
  1. EXUBERA [Suspect]
     Indication: TYPE 2 DIABETES MELLITUS
     Route: 055
     Dates: start: 20070828, end: 20071001
  2. BYETTA [Concomitant]
  3. ACTOS [Concomitant]
     Dosage: DAILY DOSE:45MG
  4. ALPRAZOLAM [Concomitant]
     Dosage: DAILY DOSE:3MG
  5. LEXAPRO [Concomitant]
  6. ECOTRIN [Concomitant]
  7. FOLTX [Concomitant]
  8. SYNTHROID [Concomitant]
     Dosage: DAILY DOSE:50MCG
  9. PREMARIN [Concomitant]
  10. LOPRESSOR [Concomitant]
     Dosage: DAILY DOSE:50MG
  11. ZOCOR [Concomitant]
     Dosage: DAILY DOSE:40MG
  12. DEMADEX [Concomitant]
     Dosage: DAILY DOSE:20MG
  13. ALTACE [Concomitant]
  14. GLIMEPIRIDE [Concomitant]

REACTIONS (3)
  - BLOOD GLUCOSE DECREASED [None]
  - DYSPNOEA [None]
  - WHEEZING [None]
